FAERS Safety Report 7921044-9 (Version None)
Quarter: 2011Q4

REPORT INFORMATION
  Report Type: 
  Country: None (occurrence: None)
  Receive Date: 20111117
  Receipt Date: 20111104
  Transmission Date: 20120403
  Serious: Yes (Other)
  Sender: FDA-Public Use
  Company Number: IT-MYLANLABS-2011S1022967

PATIENT
  Age: 62 Year
  Sex: Male

DRUGS (7)
  1. PROSTIDE /01130001/ [Concomitant]
     Indication: PRODUCT USED FOR UNKNOWN INDICATION
  2. TICLOPIDINE HCL [Suspect]
     Indication: ANTIPLATELET THERAPY
     Route: 048
     Dates: start: 20080407, end: 20080802
  3. TICLOPIDINE HCL [Suspect]
     Dates: start: 20080808, end: 20081101
  4. ENALAPRIL MALEATE [Concomitant]
     Indication: PRODUCT USED FOR UNKNOWN INDICATION
  5. NEBIVOLOL HCL [Concomitant]
     Indication: PRODUCT USED FOR UNKNOWN INDICATION
  6. TICLOPIDINE HCL [Suspect]
     Dates: start: 20090104, end: 20090310
  7. TICLOPIDINE HCL [Suspect]
     Dates: start: 20090601, end: 20091210

REACTIONS (2)
  - GASTRITIS [None]
  - LEUKOPENIA [None]
